FAERS Safety Report 24452239 (Version 2)
Quarter: 2024Q4

REPORT INFORMATION
  Report Type: Spontaneous
  Country: US (occurrence: US)
  Receive Date: 20241017
  Receipt Date: 20241028
  Transmission Date: 20250115
  Serious: No
  Sender: FRESENIUS KABI
  Company Number: US-FreseniusKabi-FK202415169

PATIENT
  Age: 73 Year
  Sex: Female
  Weight: 63.05 kg

DRUGS (1)
  1. PACLITAXEL [Suspect]
     Active Substance: PACLITAXEL
     Indication: Ovarian cancer
     Dosage: FORM OF ADMINISTRATION: INJECTION?TAXOL C2D1 (PACLITAXEL)?CHANGED TO AND TOLERATE DOCETAXEL
     Dates: start: 20240307

REACTIONS (5)
  - Dizziness [Recovering/Resolving]
  - Flushing [Recovering/Resolving]
  - Nausea [Recovering/Resolving]
  - Vomiting [Recovering/Resolving]
  - Muscle spasms [Recovering/Resolving]

NARRATIVE: CASE EVENT DATE: 20240307
